FAERS Safety Report 5857148-4 (Version None)
Quarter: 2008Q3

REPORT INFORMATION
  Report Type: 
  Country: None (occurrence: None)
  Receive Date: 20080825
  Receipt Date: 20080815
  Transmission Date: 20090109
  Serious: Yes (Hospitalization)
  Sender: FDA-Public Use
  Company Number: US-AMGEN-KDL300026

PATIENT
  Sex: Male

DRUGS (5)
  1. NEUPOGEN [Suspect]
     Indication: MYELODYSPLASTIC SYNDROME
     Route: 058
     Dates: start: 20060101
  2. FAMOTIDINE [Concomitant]
     Dates: start: 20080804
  3. OXYCODONE HCL [Concomitant]
     Dates: start: 20080728
  4. CEFAZOLIN [Concomitant]
     Dates: start: 20080731
  5. NYSTATIN [Concomitant]
     Dates: start: 20080730

REACTIONS (4)
  - BACK PAIN [None]
  - CHEST DISCOMFORT [None]
  - HYPOTENSION [None]
  - MUSCLE SPASMS [None]
